FAERS Safety Report 15780359 (Version 2)
Quarter: 2019Q1

REPORT INFORMATION
  Report Type: Report from Study
  Country: ES (occurrence: ES)
  Receive Date: 20190102
  Receipt Date: 20190125
  Transmission Date: 20190417
  Serious: Yes (Other)
  Sender: FDA-Public Use
  Company Number: ES-ACCORD-098850

PATIENT
  Age: 59 Year
  Sex: Female

DRUGS (4)
  1. AFLIBERCEPT [Suspect]
     Active Substance: AFLIBERCEPT
     Indication: COLORECTAL CANCER METASTATIC
     Route: 041
     Dates: start: 20151229, end: 20151229
  2. IRINOTECAN [Suspect]
     Active Substance: IRINOTECAN
     Indication: COLORECTAL CANCER METASTATIC
     Route: 041
     Dates: start: 20151229, end: 20151229
  3. FLUOROURACIL. [Suspect]
     Active Substance: FLUOROURACIL
     Indication: COLORECTAL CANCER METASTATIC
     Dosage: FORM:UNKNOWN
     Route: 040
     Dates: start: 20160307, end: 20160307
  4. FOLINIC ACID [Suspect]
     Active Substance: LEUCOVORIN
     Indication: COLORECTAL CANCER METASTATIC
     Route: 041
     Dates: start: 20151215, end: 20151215

REACTIONS (8)
  - Overdose [Unknown]
  - Hypertension [Recovering/Resolving]
  - Haematuria [Recovered/Resolved]
  - Asthenia [Recovered/Resolved]
  - Device related infection [Recovering/Resolving]
  - Neutrophil count decreased [Recovered/Resolved]
  - Alopecia [Recovered/Resolved]
  - Dysphonia [Recovered/Resolved]

NARRATIVE: CASE EVENT DATE: 20151229
